FAERS Safety Report 6394944-1 (Version None)
Quarter: 2009Q4

REPORT INFORMATION
  Report Type: 
  Country: None (occurrence: None)
  Receive Date: 20091009
  Receipt Date: 20090929
  Transmission Date: 20100525
  Serious: Yes (Other)
  Sender: FDA-Public Use
  Company Number: HK-PFIZER INC-2009260620

PATIENT
  Age: 44 Year

DRUGS (3)
  1. SUTENT [Suspect]
     Indication: ANGIOSARCOMA
     Dosage: 25 MG, 1X/DAY
     Route: 048
     Dates: start: 20090702, end: 20090708
  2. SUTENT [Suspect]
     Dosage: 37.5 MG, 1X/DAY
     Route: 048
     Dates: start: 20090709, end: 20090726
  3. SUTENT [Suspect]
     Dosage: 25 MG, 1X/DAY
     Route: 048
     Dates: start: 20090727

REACTIONS (4)
  - ABDOMINAL PAIN [None]
  - MOUTH ULCERATION [None]
  - PLATELET COUNT DECREASED [None]
  - SKIN DISCOLOURATION [None]
